FAERS Safety Report 19940603 (Version 1)
Quarter: 2021Q4

REPORT INFORMATION
  Report Type: Spontaneous
  Country: US (occurrence: US)
  Receive Date: 20211011
  Receipt Date: 20211011
  Transmission Date: 20220303
  Serious: Yes (Life-Threatening)
  Sender: FDA-Public Use
  Company Number: US-AMERICAN REGENT INC-2021002619

PATIENT
  Age: 42 Year
  Sex: Female
  Weight: 85 kg

DRUGS (13)
  1. INDIGO CARMINE [Suspect]
     Active Substance: INDIGOTINDISULFONATE SODIUM
     Indication: Hysterectomy
     Dosage: 5 MILLILITER OF 0.8% INDIGOTINDISULFONATE
  2. CIPRO [Concomitant]
     Active Substance: CIPROFLOXACIN HYDROCHLORIDE
     Indication: Product used for unknown indication
     Dosage: 500 MILLIGRAM, QD
     Route: 048
  3. PEPCID AC [Concomitant]
     Active Substance: FAMOTIDINE
     Indication: Product used for unknown indication
     Dosage: 20 MILLIGRAM, QD
     Route: 048
  4. REGLAN [Concomitant]
     Active Substance: METOCLOPRAMIDE HYDROCHLORIDE
     Indication: Product used for unknown indication
     Dosage: 10 MILLIGRAM EVERY 12 HOURS
     Route: 048
  5. FLAGYL [Concomitant]
     Active Substance: METRONIDAZOLE\METRONIDAZOLE HYDROCHLORIDE
     Indication: Product used for unknown indication
     Dosage: 500 MILLIGRAM EVERY 8 HOURS
     Route: 048
  6. ULTRAM [Concomitant]
     Active Substance: TRAMADOL HYDROCHLORIDE
     Indication: Product used for unknown indication
     Dosage: 50 MILLIGRAM EVERY 12 HOURS
     Route: 048
  7. MIDAZOLAM [Concomitant]
     Active Substance: MIDAZOLAM
     Indication: Sedation
     Dosage: 4 MILLIGRAM
  8. FENTANYL [Concomitant]
     Active Substance: FENTANYL
     Indication: Sedation
     Dosage: 100 MICROGRAM
  9. FENTANYL [Concomitant]
     Active Substance: FENTANYL
     Dosage: 100 MICROGRAM
  10. PROPOFOL [Concomitant]
     Active Substance: PROPOFOL
     Indication: Sedation
     Dosage: 20 MILLIGRAM
  11. ISOFLURANE [Concomitant]
     Active Substance: ISOFLURANE
     Indication: Sedation
     Dosage: 1.5%-3%
  12. OXYGEN [Concomitant]
     Active Substance: OXYGEN
     Indication: Sedation
     Dosage: UNK
  13. CEFOXITIN [Concomitant]
     Active Substance: CEFOXITIN SODIUM
     Indication: Prophylaxis
     Dosage: 2 GRAM
     Route: 042

REACTIONS (3)
  - Anaphylactoid reaction [Recovered/Resolved]
  - Cardiac arrest [Recovered/Resolved]
  - Product use in unapproved indication [Unknown]
